FAERS Safety Report 24806682 (Version 1)
Quarter: 2025Q1

REPORT INFORMATION
  Report Type: Spontaneous
  Country: FR (occurrence: FR)
  Receive Date: 20250104
  Receipt Date: 20250104
  Transmission Date: 20250408
  Serious: Yes (Disabling, Other)
  Sender: CELLTRION
  Company Number: None

PATIENT

DRUGS (7)
  1. RITUXIMAB [Suspect]
     Active Substance: RITUXIMAB
     Indication: Plasma cell myeloma
     Route: 042
     Dates: start: 20240219, end: 20240506
  2. OXALIPLATIN [Suspect]
     Active Substance: OXALIPLATIN
     Indication: Plasma cell myeloma
     Route: 042
     Dates: start: 20240219, end: 20240506
  3. CARMUSTINE [Concomitant]
     Active Substance: CARMUSTINE
  4. CYTARABINE [Concomitant]
     Active Substance: CYTARABINE
  5. DEXAMETHASONE [Concomitant]
     Active Substance: DEXAMETHASONE
  6. ETOPOSIDE [Concomitant]
     Active Substance: ETOPOSIDE
  7. MELPHALAN [Concomitant]
     Active Substance: MELPHALAN

REACTIONS (2)
  - Deafness bilateral [Not Recovered/Not Resolved]
  - Intentional product use issue [Unknown]

NARRATIVE: CASE EVENT DATE: 20240601
